FAERS Safety Report 12180124 (Version 1)
Quarter: 2016Q1

REPORT INFORMATION
  Report Type: Spontaneous
  Country: KM (occurrence: None)
  Receive Date: 20160314
  Receipt Date: 20160314
  Transmission Date: 20160526
  Serious: Yes (Disabling)
  Sender: FDA-Public Use
  Company Number: None

PATIENT
  Age: 23 Year
  Sex: Female
  Weight: 54 kg

DRUGS (3)
  1. IMURAN + SALOFALK [Concomitant]
  2. IMURAN [Suspect]
     Active Substance: AZATHIOPRINE
     Indication: COLITIS ULCERATIVE
     Dosage: ONE TAB.  50MG DAILY ONCE DAILY TAKEN BY MOUTH
     Route: 048
     Dates: start: 20151014, end: 20160311
  3. IRON [Concomitant]
     Active Substance: IRON

REACTIONS (1)
  - Headache [None]

NARRATIVE: CASE EVENT DATE: 20160311
